FAERS Safety Report 9966251 (Version 1)
Quarter: 2014Q1

REPORT INFORMATION
  Report Type: Report from Study
  Country: US (occurrence: US)
  Receive Date: 20140305
  Receipt Date: 20140305
  Transmission Date: 20141002
  Serious: No
  Sender: FDA-Public Use
  Company Number: US-ABBVIE-13P-163-1123140-00

PATIENT
  Age: 51 Year
  Sex: Female

DRUGS (8)
  1. HUMIRA [Suspect]
     Indication: COLITIS ULCERATIVE
     Dosage: LOADING DOSE
     Dates: start: 20130621
  2. LIALDA [Concomitant]
     Indication: COLITIS ULCERATIVE
  3. FOLIC ACID [Concomitant]
     Indication: PRODUCT USED FOR UNKNOWN INDICATION
  4. SUCRALFATE [Concomitant]
     Indication: GASTRIC DISORDER
  5. PANTOPRAZOLE [Concomitant]
     Indication: GASTRIC DISORDER
  6. LEVOTHYROXINE [Concomitant]
     Indication: HYPOTHYROIDISM
  7. SIMVASTATIN [Concomitant]
     Indication: BLOOD CHOLESTEROL
     Dosage: AT NIGHT
  8. DIPHENOXYLATE/ATROPINE [Concomitant]
     Indication: DIARRHOEA

REACTIONS (5)
  - Colitis ulcerative [Not Recovered/Not Resolved]
  - Local swelling [Not Recovered/Not Resolved]
  - Drug dose omission [Not Recovered/Not Resolved]
  - Abdominal pain upper [Not Recovered/Not Resolved]
  - Joint swelling [Not Recovered/Not Resolved]
